FAERS Safety Report 5580087-3 (Version None)
Quarter: 2007Q4

REPORT INFORMATION
  Report Type: 
  Country: None (occurrence: None)
  Receive Date: 20071227
  Receipt Date: 20071227
  Transmission Date: 20080405
  Serious: Yes (Hospitalization)
  Sender: FDA-Public Use
  Company Number: None

PATIENT
  Sex: Male
  Weight: 83 kg

DRUGS (2)
  1. CISPLATIN [Suspect]
     Dosage: 194 MG
     Dates: end: 20071114
  2. OXYCODONE HCL [Concomitant]

REACTIONS (7)
  - ATRIAL FIBRILLATION [None]
  - DEHYDRATION [None]
  - HEART RATE INCREASED [None]
  - HYPOTENSION [None]
  - NAUSEA [None]
  - PYREXIA [None]
  - VOMITING [None]
